FAERS Safety Report 23310069 (Version 4)
Quarter: 2024Q1

REPORT INFORMATION
  Report Type: Spontaneous
  Country: DE (occurrence: DE)
  Receive Date: 20231218
  Receipt Date: 20240301
  Transmission Date: 20240410
  Serious: Yes (Death, Life-Threatening, Hospitalization, Other)
  Sender: FDA-Public Use
  Company Number: DE-SERVIER-S23013769

PATIENT
  Age: 58 Year
  Sex: Female

DRUGS (29)
  1. METHOTREXATE [Suspect]
     Active Substance: METHOTREXATE
     Indication: B-cell type acute leukaemia
     Dosage: 1000 MILLIGRAM/SQ. METER
     Route: 042
     Dates: start: 202201, end: 202202
  2. METHOTREXATE [Suspect]
     Active Substance: METHOTREXATE
     Indication: Acute lymphocytic leukaemia
     Dosage: UNK
     Route: 037
     Dates: start: 201906
  3. METHOTREXATE [Suspect]
     Active Substance: METHOTREXATE
     Dosage: 1000 MILLIGRAM/SQ. METER AS 24-H INFUSION
     Route: 065
     Dates: start: 202202
  4. PEGASPARGASE [Suspect]
     Active Substance: PEGASPARGASE
     Indication: B-cell type acute leukaemia
     Dosage: 1 DOSAGE FORM
     Route: 065
     Dates: start: 202201, end: 202202
  5. PEGASPARGASE [Suspect]
     Active Substance: PEGASPARGASE
     Indication: Leukaemia recurrent
     Dosage: 1000 IE/M2, WERE ADMINISTERED ON DAYS 1 AND 2.
     Route: 065
     Dates: start: 202202
  6. PEGASPARGASE [Suspect]
     Active Substance: PEGASPARGASE
     Indication: Acute lymphocytic leukaemia
     Dosage: 2000 U/M2  CYCLICAL
     Route: 065
     Dates: start: 201906
  7. RITUXIMAB [Suspect]
     Active Substance: RITUXIMAB
     Indication: Acute lymphocytic leukaemia
     Dosage: UNK
     Route: 065
     Dates: start: 202201, end: 202202
  8. INOTUZUMAB OZOGAMICIN [Suspect]
     Active Substance: INOTUZUMAB OZOGAMICIN
     Indication: Leukaemia recurrent
     Dosage: 0.3 MG/M2, 2 DOSES CYCLIC
     Route: 065
     Dates: start: 202111
  9. INOTUZUMAB OZOGAMICIN [Suspect]
     Active Substance: INOTUZUMAB OZOGAMICIN
     Indication: B-cell type acute leukaemia
     Dosage: 0.6 MG/M2, 2 DOSES CYCLIC
     Route: 065
     Dates: start: 202111
  10. INOTUZUMAB OZOGAMICIN [Suspect]
     Active Substance: INOTUZUMAB OZOGAMICIN
     Dosage: 0.3 MG/M2, TWO ADDITIONAL DOSES EACH CYCLIC
     Route: 065
     Dates: start: 202112
  11. ANTITHROMBIN III HUMAN [Suspect]
     Active Substance: ANTITHROMBIN III HUMAN
     Indication: Anticoagulant therapy
     Dosage: UNK
     Route: 065
  12. PHYTONADIONE [Suspect]
     Active Substance: PHYTONADIONE
     Indication: Anticoagulant therapy
     Dosage: UNK
     Route: 065
  13. FIBRINOGEN [Suspect]
     Active Substance: FIBRINOGEN HUMAN
     Indication: Anticoagulant therapy
     Dosage: UNK
     Route: 065
  14. CYCLOPHOSPHAMIDE [Concomitant]
     Active Substance: CYCLOPHOSPHAMIDE
     Indication: Leukaemia recurrent
     Dosage: UNK CYCLICAL
     Route: 065
     Dates: start: 201906
  15. CYCLOPHOSPHAMIDE [Concomitant]
     Active Substance: CYCLOPHOSPHAMIDE
     Indication: B-cell type acute leukaemia
  16. BLINATUMOMAB [Concomitant]
     Active Substance: BLINATUMOMAB
     Indication: Leukaemia recurrent
     Dosage: UNK
     Route: 065
     Dates: start: 202009
  17. BLINATUMOMAB [Concomitant]
     Active Substance: BLINATUMOMAB
     Indication: B-cell type acute leukaemia
  18. VINCRISTINE [Concomitant]
     Active Substance: VINCRISTINE
     Indication: Leukaemia recurrent
     Dosage: UNK CYCLICAL
     Route: 065
  19. VINCRISTINE [Concomitant]
     Active Substance: VINCRISTINE
     Indication: B-cell type acute leukaemia
  20. FLUDARABINE [Concomitant]
     Active Substance: FLUDARABINE PHOSPHATE
     Indication: Therapeutic procedure
     Dosage: UNK
     Route: 065
     Dates: start: 201912
  21. CYTARABINE [Concomitant]
     Active Substance: CYTARABINE
     Indication: Leukaemia recurrent
     Dosage: UNK
     Route: 065
  22. CYTARABINE [Concomitant]
     Active Substance: CYTARABINE
     Indication: Leukaemia recurrent
  23. CYTARABINE [Concomitant]
     Active Substance: CYTARABINE
     Indication: Leukaemia recurrent
     Dosage: UNK CYCLICAL
     Route: 065
  24. CYTARABINE [Concomitant]
     Active Substance: CYTARABINE
     Indication: B-cell type acute leukaemia
  25. RITUXIMAB [Concomitant]
     Active Substance: RITUXIMAB
     Indication: Leukaemia recurrent
     Dosage: UNK CYCLICAL
     Route: 065
  26. RITUXIMAB [Concomitant]
     Active Substance: RITUXIMAB
     Indication: B-cell type acute leukaemia
  27. DEXAMETHASONE [Concomitant]
     Active Substance: DEXAMETHASONE
     Indication: Leukaemia recurrent
     Dosage: UNK
     Route: 065
  28. DEXAMETHASONE [Concomitant]
     Active Substance: DEXAMETHASONE
     Indication: Leukaemia recurrent
  29. URSODIOL [Concomitant]
     Active Substance: URSODIOL
     Indication: Prophylaxis
     Dosage: UNK CYCLICAL
     Route: 065

REACTIONS (6)
  - Shock haemorrhagic [Fatal]
  - Lactic acidosis [Fatal]
  - Acute hepatic failure [Fatal]
  - Toxicity to various agents [Not Recovered/Not Resolved]
  - Stomatitis [Unknown]
  - Drug ineffective [Unknown]

NARRATIVE: CASE EVENT DATE: 20220101
